FAERS Safety Report 10258144 (Version 1)
Quarter: 2014Q2

REPORT INFORMATION
  Report Type: Spontaneous
  Country: US (occurrence: None)
  Receive Date: 20140623
  Receipt Date: 20140623
  Transmission Date: 20141212
  Serious: No
  Sender: FDA-Public Use
  Company Number: None

PATIENT
  Age: 71 Year
  Sex: Female
  Weight: 58.97 kg

DRUGS (2)
  1. WARFARIN 2 MG [Suspect]
     Indication: ATRIAL FIBRILLATION
     Dosage: 1 1/2-2 PILLS ONCE DAILY ORAL
     Route: 048
     Dates: start: 20130901, end: 20131001
  2. HYDROCHLOROTHIAZIDE 25 MG TABLETS [Suspect]
     Indication: HYPERTENSION
     Dosage: 1 PILL ONCE DAILY ORAL
     Route: 048
     Dates: start: 20130515, end: 20130601

REACTIONS (5)
  - Rash [None]
  - Dry skin [None]
  - Rash pustular [None]
  - Erythema [None]
  - Pruritus [None]
